FAERS Safety Report 11458053 (Version 1)
Quarter: 2015Q3

REPORT INFORMATION
  Report Type: Spontaneous
  Country: US (occurrence: US)
  Receive Date: 20150904
  Receipt Date: 20150904
  Transmission Date: 20151125
  Serious: No
  Sender: FDA-Public Use
  Company Number: US-BAYER-2015-415091

PATIENT
  Age: 79 Year
  Sex: Female
  Weight: 54.42 kg

DRUGS (1)
  1. ALEVE [Suspect]
     Active Substance: NAPROXEN SODIUM
     Indication: PAIN
     Dosage: 1 DF, ONCE
     Route: 048
     Dates: start: 20150513, end: 20150514

REACTIONS (3)
  - Sleep disorder [None]
  - Burning sensation [None]
  - Skin discolouration [Unknown]

NARRATIVE: CASE EVENT DATE: 20150513
